FAERS Safety Report 11751996 (Version 5)
Quarter: 2015Q4

REPORT INFORMATION
  Report Type: Spontaneous
  Country: RU (occurrence: RU)
  Receive Date: 20151118
  Receipt Date: 20151215
  Transmission Date: 20160304
  Serious: Yes (Hospitalization, Other)
  Sender: FDA-Public Use
  Company Number: RU-GLAXOSMITHKLINE-RU2015GSK162025

PATIENT
  Age: 42 Year
  Sex: Female
  Weight: 96 kg

DRUGS (6)
  1. BENLYSTA [Suspect]
     Active Substance: BELIMUMAB
     Indication: SYSTEMIC LUPUS ERYTHEMATOSUS
     Dosage: 920 MG, Z
     Route: 042
     Dates: start: 20150521
  2. BENLYSTA [Suspect]
     Active Substance: BELIMUMAB
     Dosage: 920 MG, Z
     Dates: start: 20150618
  3. BENLYSTA [Suspect]
     Active Substance: BELIMUMAB
     Dosage: UNK
     Dates: start: 20150717
  4. HYDROXYCHLOROQUINE [Concomitant]
     Active Substance: HYDROXYCHLOROQUINE
     Indication: PRODUCT USED FOR UNKNOWN INDICATION
     Dosage: 400 MG, QD
  5. BENLYSTA [Suspect]
     Active Substance: BELIMUMAB
     Dosage: UNK
     Dates: start: 20150827
  6. METYPRED [Concomitant]
     Active Substance: METHYLPREDNISOLONE
     Indication: SYSTEMIC LUPUS ERYTHEMATOSUS
     Dosage: 4 MG, QD
     Route: 048
     Dates: start: 20150522, end: 20150522

REACTIONS (11)
  - Systemic lupus erythematosus [Unknown]
  - Arthralgia [Unknown]
  - Infusion related reaction [Unknown]
  - Immune system disorder [Unknown]
  - Systemic lupus erythematosus rash [Recovering/Resolving]
  - Myalgia [Unknown]
  - Diffuse alopecia [Unknown]
  - Leukopenia [Unknown]
  - Diffuse vasculitis [Unknown]
  - Pericarditis [Unknown]
  - Subacute cutaneous lupus erythematosus [Unknown]

NARRATIVE: CASE EVENT DATE: 20150522
